FAERS Safety Report 6344250-6 (Version None)
Quarter: 2009Q3

REPORT INFORMATION
  Report Type: 
  Country: None (occurrence: None)
  Receive Date: 20090908
  Receipt Date: 20090902
  Transmission Date: 20100115
  Serious: Yes (Other)
  Sender: FDA-Public Use
  Company Number: US-ASTRAZENECA-2009SE11097

PATIENT
  Sex: Female

DRUGS (1)
  1. TOPROL-XL [Suspect]
     Route: 048

REACTIONS (5)
  - BREAST OPERATION [None]
  - CATARACT [None]
  - CROHN'S DISEASE [None]
  - DEPRESSION [None]
  - VARICELLA [None]
